FAERS Safety Report 7913965-8 (Version None)
Quarter: 2011Q4

REPORT INFORMATION
  Report Type: 
  Country: None (occurrence: None)
  Receive Date: 20111115
  Receipt Date: 20111028
  Transmission Date: 20120403
  Serious: Yes (Hospitalization, Other)
  Sender: FDA-Public Use
  Company Number: DE-JNJFOC-20111105284

PATIENT
  Age: 81 Year
  Sex: Female
  Weight: 63 kg

DRUGS (7)
  1. ACETAMINOPHEN [Suspect]
     Dosage: 1000-4000 MG DAILY
     Route: 042
     Dates: start: 20110727, end: 20110802
  2. LYRICA [Suspect]
     Indication: PRODUCT USED FOR UNKNOWN INDICATION
     Dosage: 2/ DAY
     Route: 048
     Dates: start: 20110729, end: 20110808
  3. LYRICA [Suspect]
     Dosage: 2/ DAY
     Route: 048
     Dates: start: 20110725, end: 20110725
  4. ACETAMINOPHEN [Suspect]
     Indication: PRODUCT USED FOR UNKNOWN INDICATION
     Dosage: 1000-4000 MG DAILY
     Route: 042
     Dates: start: 20110725, end: 20110725
  5. TETRAZEPAM [Suspect]
     Indication: PRODUCT USED FOR UNKNOWN INDICATION
     Dosage: 25-50MG DAILY
     Route: 048
     Dates: start: 20110724, end: 20110806
  6. ZOLPIDEM TARTRATE [Suspect]
     Indication: PRODUCT USED FOR UNKNOWN INDICATION
     Dosage: 1/ DAY
     Route: 048
     Dates: start: 20110723, end: 20110808
  7. PALEXIA RETARD [Suspect]
     Indication: PRODUCT USED FOR UNKNOWN INDICATION
     Dosage: 200-600MG DAILY
     Route: 048
     Dates: start: 20110725, end: 20110806

REACTIONS (1)
  - HEPATITIS ACUTE [None]
